FAERS Safety Report 7367092-1 (Version None)
Quarter: 2011Q1

REPORT INFORMATION
  Report Type: 
  Country: None (occurrence: None)
  Receive Date: 20110322
  Receipt Date: 20110314
  Transmission Date: 20110831
  Serious: Yes (Hospitalization, Other)
  Sender: FDA-Public Use
  Company Number: US-SHIRE-ALL1-2011-00696

PATIENT
  Sex: Female

DRUGS (2)
  1. FOSRENOL [Suspect]
     Dosage: 500 MG, OTHER, (500 MG WITH SNACKS)
     Route: 048
     Dates: end: 20110101
  2. FOSRENOL [Suspect]
     Indication: HYPERPHOSPHATAEMIA
     Dosage: 1000 MG, OTHER, (1000 MG WITH EACH MEAL)
     Route: 048
     Dates: end: 20110101

REACTIONS (1)
  - RENAL TRANSPLANT [None]
